FAERS Safety Report 16082303 (Version 1)
Quarter: 2019Q1

REPORT INFORMATION
  Report Type: Spontaneous
  Country: GB (occurrence: GB)
  Receive Date: 20190318
  Receipt Date: 20190318
  Transmission Date: 20190418
  Serious: Yes (Other)
  Sender: FDA-Public Use
  Company Number: GB-AUROBINDO-AUR-APL-2019-006271

PATIENT

DRUGS (9)
  1. SPIRONOLACTONE. [Suspect]
     Active Substance: SPIRONOLACTONE
     Indication: HYPERTENSION
     Dosage: UNK
     Route: 048
  2. BENDROFLUAZIDE TABLETS [Suspect]
     Active Substance: BENDROFLUMETHIAZIDE
     Indication: HYPERTENSION
     Dosage: UNK
     Route: 048
  3. CANDESARTAN TABLETS [Suspect]
     Active Substance: CANDESARTAN
     Indication: HYPERTENSION
     Dosage: UNK
     Route: 048
  4. HYDRALAZINE [Suspect]
     Active Substance: HYDRALAZINE HYDROCHLORIDE
     Indication: HYPERTENSION
     Dosage: UNK
     Route: 048
  5. RAMIPRIL TABLET [Suspect]
     Active Substance: RAMIPRIL
     Indication: HYPERTENSION
     Dosage: UNK
     Route: 048
  6. BISOPROLOL FILM-COATED TABLETS [Suspect]
     Active Substance: BISOPROLOL
     Indication: HYPERTENSION
     Dosage: UNK
     Route: 048
  7. DILTIAZEM. [Suspect]
     Active Substance: DILTIAZEM
     Indication: HYPERTENSION
     Dosage: UNK
     Route: 048
  8. DOXAZOSIN [Suspect]
     Active Substance: DOXAZOSIN\DOXAZOSIN MESYLATE
     Indication: HYPERTENSION
     Route: 048
  9. AMLODIPINE [Suspect]
     Active Substance: AMLODIPINE BESYLATE
     Indication: HYPERTENSION
     Dosage: UNK
     Route: 048

REACTIONS (8)
  - Hypertension [Unknown]
  - Malaise [Unknown]
  - Paraesthesia [Unknown]
  - Drug intolerance [Unknown]
  - Hypoaesthesia [Unknown]
  - Asthenia [Unknown]
  - Chest pain [Unknown]
  - Fatigue [Unknown]
